FAERS Safety Report 13017397 (Version 1)
Quarter: 2016Q4

REPORT INFORMATION
  Report Type: Spontaneous
  Country: US (occurrence: US)
  Receive Date: 20161212
  Receipt Date: 20161212
  Transmission Date: 20170207
  Serious: No
  Sender: FDA-Public Use
  Company Number: US-TEVA-715997ACC

PATIENT
  Sex: Female

DRUGS (1)
  1. RALOXIFENE HYDROCHLORIDE TABLETS, USP [Suspect]
     Active Substance: RALOXIFENE HYDROCHLORIDE

REACTIONS (2)
  - Fatigue [Unknown]
  - Chest pain [Unknown]
